FAERS Safety Report 6310589-3 (Version None)
Quarter: 2009Q3

REPORT INFORMATION
  Report Type: 
  Country: None (occurrence: None)
  Receive Date: 20090814
  Receipt Date: 20090714
  Transmission Date: 20100115
  Serious: No
  Sender: FDA-Public Use
  Company Number: US-BRISTOL-MYERS SQUIBB COMPANY-14646566

PATIENT
  Age: 73 Year
  Sex: Female

DRUGS (4)
  1. IXEMPRA KIT [Suspect]
     Indication: BREAST CANCER METASTATIC
     Route: 042
     Dates: start: 20090311
  2. PARAPLATIN [Suspect]
  3. TAXOTERE [Suspect]
     Dosage: RECEIVED MULTIPLE CYCLES
  4. XELODA [Concomitant]
     Dosage: 1DOSAGEFORM=1000M /M2 BID.

REACTIONS (3)
  - GAIT DISTURBANCE [None]
  - PERIPHERAL SENSORIMOTOR NEUROPATHY [None]
  - ROAD TRAFFIC ACCIDENT [None]
